FAERS Safety Report 8479735-X (Version None)
Quarter: 2012Q2

REPORT INFORMATION
  Report Type: 
  Country: None (occurrence: None)
  Receive Date: 20120629
  Receipt Date: 20120620
  Transmission Date: 20120825
  Serious: Yes (Hospitalization)
  Sender: FDA-Public Use
  Company Number: FR-ROCHE-794220

PATIENT
  Sex: Female
  Weight: 84 kg

DRUGS (13)
  1. PREDNISONE [Suspect]
     Indication: PRODUCT USED FOR UNKNOWN INDICATION
     Dates: start: 20020101, end: 20110727
  2. ROSUVASTATIN [Concomitant]
     Dosage: DRUG REPORTED AS ROSUVASTATIN CALLIQUE.
  3. ACETAMINOPHEN [Concomitant]
  4. METHOTREXATE [Suspect]
     Indication: PRODUCT USED FOR UNKNOWN INDICATION
     Dates: start: 20021021, end: 20110722
  5. FLUOXETINE HYDROCHLORIDE [Concomitant]
     Dosage: DRUG REPORTED AS FLUOXETINE CHLORHYDRATE
  6. KODEIN [Concomitant]
  7. ACTEMRA [Suspect]
  8. FOLIC ACID [Concomitant]
  9. CRESTOR [Concomitant]
  10. ACTEMRA [Suspect]
     Indication: RHEUMATOID ARTHRITIS
     Dosage: FORM: INFUSION.  LAST DOSE PRIOR TO SAE: 22 JUNE 2011
     Route: 042
     Dates: start: 20060823, end: 20110622
  11. ACTEMRA [Suspect]
  12. ESOMEPRAZOLE MAGNESIUM [Concomitant]
  13. PROZAC [Concomitant]

REACTIONS (3)
  - HEPATITIS E [None]
  - LYMPHOPENIA [None]
  - IMMUNOSUPPRESSION [None]
